FAERS Safety Report 4442456-4 (Version None)
Quarter: 2004Q3

REPORT INFORMATION
  Report Type: 
  Country: None (occurrence: None)
  Receive Date: 20040903
  Receipt Date: 20040729
  Transmission Date: 20050211
  Serious: Yes (Other)
  Sender: FDA-Public Use
  Company Number: 2004UW16143

PATIENT
  Age: 81 Year
  Sex: Male
  Weight: 79.3795 kg

DRUGS (2)
  1. CRESTOR [Suspect]
     Indication: BLOOD CHOLESTEROL INCREASED
     Dosage: 10 MG  PO
     Route: 048
     Dates: start: 20040601
  2. CARDIZEM [Concomitant]

REACTIONS (6)
  - ARTHRALGIA [None]
  - CONSTIPATION [None]
  - INSOMNIA [None]
  - NIGHTMARE [None]
  - PRURITUS [None]
  - VERTIGO [None]
